FAERS Safety Report 20255719 (Version 1)
Quarter: 2021Q4

REPORT INFORMATION
  Report Type: Spontaneous
  Country: ES (occurrence: ES)
  Receive Date: 20211230
  Receipt Date: 20211230
  Transmission Date: 20220303
  Serious: Yes (Death, Hospitalization, Other)
  Sender: FDA-Public Use
  Company Number: ES-AstraZeneca-2021A810036

PATIENT
  Age: 88 Year
  Sex: Male

DRUGS (3)
  1. TICAGRELOR [Interacting]
     Active Substance: TICAGRELOR
     Indication: Acute myocardial infarction
     Dosage: 90 MILLIGRAM
     Route: 048
  2. TICAGRELOR [Interacting]
     Active Substance: TICAGRELOR
     Indication: Antiplatelet therapy
  3. ASPIRIN [Interacting]
     Active Substance: ASPIRIN
     Indication: Antiplatelet therapy
     Dosage: 100 MILLIGRAM

REACTIONS (2)
  - Haemorrhage intracranial [Fatal]
  - Labelled drug-drug interaction issue [Unknown]
